FAERS Safety Report 8367156-X (Version None)
Quarter: 2012Q1

REPORT INFORMATION
  Report Type: 
  Country: None (occurrence: None)
  Receive Date: 20120323
  Receipt Date: 20110816
  Transmission Date: 20120608
  Serious: Yes (Hospitalization)
  Sender: FDA-Public Use
  Company Number: 163-21880-11072532

PATIENT
  Age: 85 Year
  Sex: Female

DRUGS (19)
  1. CITALOPRAM HYDROBROMIDE [Concomitant]
  2. CREON (PANCREATIN)(CAPSULES) [Concomitant]
  3. REVLIMID [Suspect]
     Indication: MYELODYSPLASTIC SYNDROME
     Dosage: 25 MG, 1 IN 1 D, PO, 5 MG, 1 IN 1 D, PO, 2.5 MG, 1 IN 2 D, PO
     Route: 048
     Dates: start: 20110501, end: 20110701
  4. REVLIMID [Suspect]
     Indication: MYELODYSPLASTIC SYNDROME
     Dosage: 25 MG, 1 IN 1 D, PO, 5 MG, 1 IN 1 D, PO, 2.5 MG, 1 IN 2 D, PO
     Route: 048
     Dates: start: 20101130
  5. REVLIMID [Suspect]
     Indication: MYELODYSPLASTIC SYNDROME
     Dosage: 25 MG, 1 IN 1 D, PO, 5 MG, 1 IN 1 D, PO, 2.5 MG, 1 IN 2 D, PO
     Route: 048
     Dates: start: 20110101, end: 20110101
  6. CENTRUM SILVER (CENTRUM SILVER)(TABLETS) [Concomitant]
  7. FOLIC ACID (FOLIC ACID)(TABLETS) [Concomitant]
  8. LOMOTIL (LOMOTIL)(TABLETS) [Concomitant]
  9. XALATAN(LATANOPROST)(0.005 PERCENT, DROPS) [Concomitant]
  10. GEMFIBROZIL (GEMFIBROZIL)(TABLETS) [Concomitant]
  11. PRILOSEC (OMEPRAZOLE)(CAPSULES) [Concomitant]
  12. VICODIN [Concomitant]
  13. ARANESP [Concomitant]
  14. ASPIRIN (ACETYLSALICYLIC ACID)(ENTERIC-COATED TABLET) [Concomitant]
  15. CYANOCOBALAMIN [Concomitant]
  16. DEXAMETHASONE [Concomitant]
  17. BEVACIZUMAB(BEVACIZUMAB)(UNKNOWN) [Concomitant]
  18. TYLENOL EXTRA STRENGTH(PARACETAMOL)(500 MILLIGRAM, TABLETS) [Concomitant]
  19. OS-CAL 500+D(CALCITE D)(TABLETS) [Concomitant]

REACTIONS (1)
  - RECTAL HAEMORRHAGE [None]
